FAERS Safety Report 5907611-2 (Version None)
Quarter: 2008Q4

REPORT INFORMATION
  Report Type: 
  Country: None (occurrence: None)
  Receive Date: 20081003
  Receipt Date: 20080922
  Transmission Date: 20090506
  Serious: Yes (Disabling, Other)
  Sender: FDA-Public Use
  Company Number: US-ROCHE-351812

PATIENT
  Sex: Female
  Weight: 59 kg

DRUGS (3)
  1. ACCUTANE [Suspect]
     Indication: DRUG USE FOR UNKNOWN INDICATION
     Dosage: THERAPY WAS STOPPED AT UNKNOWN DATE IN 1995.
     Route: 048
     Dates: start: 19951003
  2. VITAMINS [Concomitant]
  3. ASPIRIN [Concomitant]

REACTIONS (12)
  - ALANINE AMINOTRANSFERASE INCREASED [None]
  - ANXIETY [None]
  - ASPARTATE AMINOTRANSFERASE INCREASED [None]
  - CRYING [None]
  - DEPRESSION [None]
  - HALLUCINATION, AUDITORY [None]
  - HEADACHE [None]
  - MENTAL DISORDER [None]
  - MOOD SWINGS [None]
  - PSYCHOTIC DISORDER [None]
  - SUICIDAL IDEATION [None]
  - WEIGHT INCREASED [None]
